FAERS Safety Report 4696676-4 (Version None)
Quarter: 2005Q2

REPORT INFORMATION
  Report Type: 
  Country: None (occurrence: None)
  Receive Date: 20050620
  Receipt Date: 20050304
  Transmission Date: 20051028
  Serious: No
  Sender: FDA-Public Use
  Company Number: US-YAMANOUCHI-YPA20050129

PATIENT
  Age: 26 Year
  Sex: Female
  Weight: 65.7716 kg

DRUGS (4)
  1. VESICARE [Suspect]
     Indication: HYPERTONIC BLADDER
     Dosage: 5 MG QD PO
     Route: 048
     Dates: start: 20050222
  2. NORTREL  /BRA/ [Concomitant]
  3. MULTI-VITAMINS [Concomitant]
  4. CLARITIN [Concomitant]

REACTIONS (1)
  - DRUG INEFFECTIVE [None]
